FAERS Safety Report 9818914 (Version 2)
Quarter: 2014Q1

REPORT INFORMATION
  Report Type: Spontaneous
  Country: JP (occurrence: JP)
  Receive Date: 20140115
  Receipt Date: 20140203
  Transmission Date: 20141002
  Serious: Yes (Other)
  Sender: FDA-Public Use
  Company Number: JP-PFIZER INC-2014006507

PATIENT
  Sex: Male

DRUGS (1)
  1. ZITHROMAC [Suspect]
     Dosage: 500 MG, 1X/DAY
     Route: 048
     Dates: start: 20140108, end: 20140110

REACTIONS (2)
  - Abasia [Recovered/Resolved]
  - Bone pain [Recovered/Resolved]
